FAERS Safety Report 19394523 (Version 3)
Quarter: 2025Q2

REPORT INFORMATION
  Report Type: Spontaneous
  Country: US (occurrence: US)
  Receive Date: 20210609
  Receipt Date: 20250627
  Transmission Date: 20250717
  Serious: Yes (Life-Threatening, Hospitalization, Other)
  Sender: AUROBINDO
  Company Number: US-MYLANLABS-2021M1033537

PATIENT
  Age: 13 Year
  Sex: Female

DRUGS (7)
  1. BUDESONIDE [Suspect]
     Active Substance: BUDESONIDE
     Indication: Colitis ulcerative
     Dosage: 9 MILLIGRAM, ONCE A DAY
     Route: 065
  2. BUDESONIDE [Suspect]
     Active Substance: BUDESONIDE
     Dosage: 3 MILLIGRAM, 3 TIMES A DAY
     Route: 048
     Dates: start: 20110515, end: 20121102
  3. DOXYCYCLINE [Suspect]
     Active Substance: DOXYCYCLINE
     Indication: Acne
     Route: 065
     Dates: start: 201004
  4. ASACOL [Suspect]
     Active Substance: MESALAMINE
     Indication: Colitis ulcerative
     Route: 065
  5. ASACOL [Suspect]
     Active Substance: MESALAMINE
     Route: 065
     Dates: start: 20110215, end: 20110812
  6. BALSALAZIDE [Suspect]
     Active Substance: BALSALAZIDE
     Indication: Colitis ulcerative
     Dosage: 6750 MILLIGRAM, QD
     Route: 065
  7. BALSALAZIDE [Suspect]
     Active Substance: BALSALAZIDE
     Route: 065
     Dates: start: 20111118

REACTIONS (5)
  - Dilatation intrahepatic duct acquired [Recovered/Resolved]
  - Condition aggravated [Recovered/Resolved]
  - Diarrhoea haemorrhagic [Recovered/Resolved]
  - Cholangitis sclerosing [Recovered/Resolved]
  - Weight decreased [Recovered/Resolved]

NARRATIVE: CASE EVENT DATE: 20100701
